FAERS Safety Report 5305167-9 (Version None)
Quarter: 2007Q2

REPORT INFORMATION
  Report Type: 
  Country: None (occurrence: None)
  Receive Date: 20070416
  Receipt Date: 20070406
  Transmission Date: 20071010
  Serious: Yes (Hospitalization)
  Sender: FDA-Public Use
  Company Number: 163-21880-07031545

PATIENT
  Age: 47 Year
  Sex: Male

DRUGS (7)
  1. REVLIMID [Suspect]
     Indication: MULTIPLE MYELOMA
     Dosage: 15 MG, DAILY, ORAL
     Route: 048
     Dates: start: 20060802, end: 20061201
  2. REVLIMID [Suspect]
     Indication: MULTIPLE MYELOMA
     Dosage: 15 MG, DAILY, ORAL
     Route: 048
     Dates: start: 20070131
  3. DEXAMETHASONE TAB [Concomitant]
  4. LOVASTATIN [Concomitant]
  5. ATENOLOL [Concomitant]
  6. WARFARIN SODIUM [Concomitant]
  7. FES04 (FERROUS SULFATE) [Concomitant]

REACTIONS (2)
  - ANAEMIA [None]
  - HIP FRACTURE [None]
